FAERS Safety Report 15026953 (Version 2)
Quarter: 2018Q2

REPORT INFORMATION
  Report Type: Spontaneous
  Country: US (occurrence: US)
  Receive Date: 20180619
  Receipt Date: 20180628
  Transmission Date: 20180711
  Serious: Yes (Hospitalization)
  Sender: FDA-Public Use
  Company Number: US-STRIDES ARCOLAB LIMITED-2018SP004948

PATIENT

DRUGS (2)
  1. CEFTRIAXONE. [Concomitant]
     Active Substance: CEFTRIAXONE
     Indication: SEPSIS
     Dosage: UNK
     Route: 042
  2. METRONIDAZOLE. [Suspect]
     Active Substance: METRONIDAZOLE
     Indication: SEPSIS
     Dosage: UNK
     Route: 065

REACTIONS (8)
  - Status epilepticus [Recovered/Resolved]
  - Tinnitus [Unknown]
  - Dizziness [Unknown]
  - Cerebellar ataxia [Unknown]
  - Gait disturbance [Unknown]
  - Dysmetria [Unknown]
  - Confusional state [Unknown]
  - Neurotoxicity [Unknown]
